FAERS Safety Report 7770410-3 (Version None)
Quarter: 2011Q3

REPORT INFORMATION
  Report Type: 
  Country: None (occurrence: None)
  Receive Date: 20110922
  Receipt Date: 20110404
  Transmission Date: 20111222
  Serious: No
  Sender: FDA-Public Use
  Company Number: US-ASTRAZENECA-2011SE19159

PATIENT
  Sex: Female

DRUGS (7)
  1. LEVOTHYROXINE SODIUM [Concomitant]
     Indication: THYROID DISORDER
  2. NIFEDIPINE [Concomitant]
     Indication: RAYNAUD'S PHENOMENON
  3. CLONAZEPAM [Concomitant]
     Indication: ANXIETY
  4. SEROQUEL [Suspect]
     Indication: BIPOLAR DISORDER
     Route: 048
  5. CYMBALTA [Concomitant]
     Indication: DEPRESSION
  6. SEROQUEL [Suspect]
     Indication: PSYCHOTIC DISORDER
     Route: 048
  7. HYDROCHLOROTHIAZIDE [Concomitant]
     Indication: HYPERTENSION

REACTIONS (6)
  - INTERVERTEBRAL DISC DEGENERATION [None]
  - DEPRESSION [None]
  - BACK PAIN [None]
  - PAIN IN EXTREMITY [None]
  - BACK DISORDER [None]
  - DRUG DOSE OMISSION [None]
